FAERS Safety Report 25218345 (Version 3)
Quarter: 2025Q3

REPORT INFORMATION
  Report Type: Report from Study
  Country: CO (occurrence: CO)
  Receive Date: 20250421
  Receipt Date: 20250713
  Transmission Date: 20251020
  Serious: Yes (Hospitalization)
  Sender: ABBVIE
  Company Number: CO-JNJFOC-20250420005

PATIENT
  Age: 84 Year
  Sex: Male
  Weight: 63 kg

DRUGS (1)
  1. IMBRUVICA [Suspect]
     Active Substance: IBRUTINIB
     Indication: Mantle cell lymphoma
     Route: 048
     Dates: start: 20180501, end: 20250408

REACTIONS (3)
  - Biliary obstruction [Recovered/Resolved]
  - Cholelithiasis [Unknown]
  - Sepsis [Unknown]

NARRATIVE: CASE EVENT DATE: 20250402
